FAERS Safety Report 8400876-7 (Version None)
Quarter: 2012Q2

REPORT INFORMATION
  Report Type: 
  Country: None (occurrence: None)
  Receive Date: 20120601
  Receipt Date: 20120522
  Transmission Date: 20120825
  Serious: Yes (Life-Threatening, Hospitalization, Other)
  Sender: FDA-Public Use
  Company Number: US-BRISTOL-MYERS SQUIBB COMPANY-16537409

PATIENT
  Age: 67 Year
  Sex: Male
  Weight: 155 kg

DRUGS (13)
  1. FOLIC ACID [Concomitant]
     Indication: SUPPLEMENTATION THERAPY
     Dates: start: 20120115
  2. TRIAMTERENE [Concomitant]
     Indication: HYPERTENSION
     Dates: start: 20111024
  3. METOPROLOL TARTRATE [Concomitant]
     Indication: HYPERTENSION
     Dates: start: 20111024
  4. POTASSIUM CHLORIDE [Concomitant]
     Indication: HYPOKALAEMIA
     Dates: start: 20120325
  5. CARBOPLATIN [Suspect]
     Indication: NON-SMALL CELL LUNG CANCER
     Dosage: 1DF=2.25AUC LAST DOSE ON 27MAR2012
     Route: 065
     Dates: start: 20120123
  6. CALCIUM CARBONATE [Concomitant]
     Indication: HYPOCALCAEMIA
     Dates: start: 20120328
  7. DECADRON [Concomitant]
     Dates: start: 20120122
  8. MIRTAZAPINE [Concomitant]
     Indication: INSOMNIA
     Dates: start: 20120120
  9. PEMETREXED DISODIUM [Suspect]
     Indication: NON-SMALL CELL LUNG CANCER
     Dosage: 23JAN12-12FEB12,5MAR02-5MAR2012(3654D) 188MG/M2:27MAR2012
     Route: 042
     Dates: start: 20020305
  10. VITAMIN B-12 [Concomitant]
     Indication: SUPPLEMENTATION THERAPY
     Dates: start: 20120111
  11. MAGNESIUM OXIDE [Concomitant]
     Indication: HYPOMAGNESAEMIA
     Dates: start: 20120306
  12. NEULASTA [Concomitant]
     Dates: start: 20120306
  13. DENOSUMAB [Concomitant]
     Indication: METASTASES TO BONE
     Dates: start: 20120116

REACTIONS (5)
  - ANAEMIA [None]
  - THROMBOCYTOPENIA [None]
  - DEHYDRATION [None]
  - HAEMATURIA [None]
  - SYNCOPE [None]
